FAERS Safety Report 10638618 (Version 1)
Quarter: 2014Q4

REPORT INFORMATION
  Report Type: Spontaneous
  Country: US (occurrence: US)
  Receive Date: 20141208
  Receipt Date: 20141208
  Transmission Date: 20150529
  Serious: Yes (Other)
  Sender: FDA-Public Use
  Company Number: US-SA-2014SA000229

PATIENT
  Age: 37 Year
  Sex: Female

DRUGS (1)
  1. FERRLECIT [Suspect]
     Active Substance: SODIUM FERRIC GLUCONATE COMPLEX
     Indication: ANAEMIA
     Route: 042
     Dates: start: 20131228, end: 20131228

REACTIONS (6)
  - Pain [Recovered/Resolved]
  - Contusion [Recovered/Resolved]
  - Rash [Recovered/Resolved]
  - Hypersensitivity [Recovered/Resolved]
  - Swelling [Recovered/Resolved]
  - Burning sensation [Recovered/Resolved]
